FAERS Safety Report 23069119 (Version 2)
Quarter: 2024Q1

REPORT INFORMATION
  Report Type: Spontaneous
  Country: CA (occurrence: CA)
  Receive Date: 20231016
  Receipt Date: 20240119
  Transmission Date: 20240409
  Serious: Yes (Other)
  Sender: FDA-Public Use
  Company Number: CA-PFIZER INC-PV202300165527

PATIENT
  Age: 67 Year
  Sex: Female
  Weight: 52.1 kg

DRUGS (11)
  1. CARBOPLATIN [Suspect]
     Active Substance: CARBOPLATIN
     Indication: Non-small cell lung cancer
     Dosage: UNK, CYCLIC (4 CYCLES OF INDUCTION)
     Dates: start: 202103
  2. CARBOPLATIN [Suspect]
     Active Substance: CARBOPLATIN
     Dosage: UNK UNK, CYCLIC
     Dates: start: 202211
  3. PEMETREXED [Suspect]
     Active Substance: PEMETREXED
     Indication: Non-small cell lung cancer
     Dosage: UNK UNK, CYCLIC (4 CYCLES OF INDUCTION)
     Dates: start: 202103, end: 202111
  4. PEMETREXED [Suspect]
     Active Substance: PEMETREXED
     Dosage: UNK UNK, CYCLIC
     Dates: start: 202202
  5. PEMETREXED [Suspect]
     Active Substance: PEMETREXED
     Dosage: UNK UNK, CYCLIC
     Dates: start: 202208
  6. PEMETREXED [Suspect]
     Active Substance: PEMETREXED
     Dosage: UNK UNK, CYCLIC
     Dates: start: 202211
  7. PEMBROLIZUMAB [Suspect]
     Active Substance: PEMBROLIZUMAB
     Indication: Non-small cell lung cancer
     Dosage: UNK, CYCLIC (4 CYCLES OF INDUCTION)
     Dates: start: 202103, end: 202111
  8. PEMBROLIZUMAB [Suspect]
     Active Substance: PEMBROLIZUMAB
     Dosage: UNK UNK, CYCLIC
     Dates: start: 202205
  9. LENVATINIB [Suspect]
     Active Substance: LENVATINIB
     Indication: Non-small cell lung cancer
     Dosage: UNK, CYCLIC (4 CYCLES OF INDUCTION)
     Dates: start: 202103, end: 202111
  10. LENVATINIB [Suspect]
     Active Substance: LENVATINIB
     Dosage: UNK UNK, CYCLIC
     Dates: start: 202202
  11. LENVATINIB [Suspect]
     Active Substance: LENVATINIB
     Dosage: UNK UNK, CYCLIC
     Dates: start: 202208

REACTIONS (3)
  - Immune-mediated lung disease [Unknown]
  - Immune system disorder [Unknown]
  - Neoplasm progression [Unknown]

NARRATIVE: CASE EVENT DATE: 20210101
